FAERS Safety Report 9349653 (Version 2)
Quarter: 2014Q1

REPORT INFORMATION
  Report Type: Spontaneous
  Country: FR (occurrence: None)
  Receive Date: 20130611
  Receipt Date: 20140110
  Transmission Date: 20141002
  Serious: Yes (Hospitalization)
  Sender: FDA-Public Use
  Company Number: AXC-2013-000241

PATIENT
  Age: 36 Year
  Sex: Male

DRUGS (3)
  1. PYLERA [Suspect]
     Indication: DUODENAL ULCER
     Route: 048
     Dates: start: 201304, end: 20130507
  2. PARACETAMOL (PARACETAMOL) [Suspect]
     Indication: PRODUCT USED FOR UNKNOWN INDICATION
     Route: 048
     Dates: start: 20130505, end: 20130505
  3. LANZOR [Suspect]
     Indication: DUODENAL ULCER

REACTIONS (1)
  - Stevens-Johnson syndrome [None]
